FAERS Safety Report 8763190 (Version 1)
Quarter: 2012Q4

REPORT INFORMATION
  Report Type: 
  Country: US (occurrence: US)
  Receive Date: 20120831
  Receipt Date: 20120831
  Transmission Date: 20130627
  Serious: No
  Sender: FDA-Public Use
  Company Number: US-PFIZER INC-2012211118

PATIENT
  Age: 49 Year
  Sex: Male
  Weight: 86.17 kg

DRUGS (8)
  1. VIAGRA [Suspect]
     Indication: HYPERTENSION
     Dosage: 50 mg, 1x/day
     Dates: start: 20120701, end: 201207
  2. GLUCOTROL [Concomitant]
     Indication: DIABETES MELLITUS
     Dosage: UNK, 2x/day
  3. METFORMIN [Concomitant]
     Indication: DIABETES MELLITUS
     Dosage: UNK
  4. LYRICA [Concomitant]
     Dosage: UNK
  5. METOPROLOL [Concomitant]
     Dosage: UNK, 2x/day
  6. HYDROCHLOROTHIAZIDE [Concomitant]
     Dosage: 25 mg, 1x/day
  7. LORAZEPAM [Concomitant]
     Dosage: UNK
  8. LISINOPRIL [Concomitant]
     Dosage: 20 mg, 2x/day

REACTIONS (3)
  - Off label use [Unknown]
  - Blood pressure management [Unknown]
  - Therapeutic response unexpected [Unknown]
